FAERS Safety Report 8603773-7 (Version None)
Quarter: 2012Q3

REPORT INFORMATION
  Report Type: 
  Country: None (occurrence: None)
  Receive Date: 20120817
  Receipt Date: 20120807
  Transmission Date: 20120928
  Serious: No
  Sender: FDA-Public Use
  Company Number: US-ASTRAZENECA-2012SE56014

PATIENT
  Age: 56 Year
  Sex: Male

DRUGS (20)
  1. ALLOPURINOL [Concomitant]
  2. KLOR-CON [Concomitant]
  3. HC PRAM [Concomitant]
  4. PROCTOSOL HC [Concomitant]
  5. CELEBREX [Concomitant]
  6. DEXILANT [Concomitant]
  7. FAMOTIDINE [Concomitant]
  8. PROZAC [Concomitant]
  9. FINASTERIDE [Concomitant]
  10. NYSTATIN [Concomitant]
  11. BUSPIRONE HCL [Concomitant]
  12. ACCOLATE [Suspect]
     Indication: ASTHMA
     Route: 048
  13. AMBIEN [Concomitant]
  14. TERAZOSIN HCL [Concomitant]
  15. FEXOFENADINE HCL [Concomitant]
  16. OXYBUTYNIN CHLORIDE [Concomitant]
  17. DILTIAZEM HCL [Concomitant]
  18. METFORMIN HCL [Concomitant]
  19. PROCTOFOAM HCL [Concomitant]
  20. HYZAAR [Concomitant]

REACTIONS (21)
  - BENIGN PROSTATIC HYPERPLASIA [None]
  - PAINFUL DEFAECATION [None]
  - CONSTIPATION [None]
  - DIABETES MELLITUS [None]
  - HYPERCHOLESTEROLAEMIA [None]
  - MICTURITION URGENCY [None]
  - OSTEOARTHRITIS [None]
  - HAEMORRHOIDAL HAEMORRHAGE [None]
  - ANXIETY [None]
  - SPINAL OSTEOARTHRITIS [None]
  - PAINFUL ERECTION [None]
  - ASTHMA [None]
  - PEYRONIE'S DISEASE [None]
  - ARTHRALGIA [None]
  - PENIS DISORDER [None]
  - JOINT SWELLING [None]
  - RECTAL TENESMUS [None]
  - CHEST PAIN [None]
  - GOUTY ARTHRITIS [None]
  - ESSENTIAL HYPERTENSION [None]
  - INSOMNIA [None]
